FAERS Safety Report 5811727-9 (Version None)
Quarter: 2008Q3

REPORT INFORMATION
  Report Type: 
  Country: None (occurrence: None)
  Receive Date: 20080716
  Receipt Date: 20080711
  Transmission Date: 20090109
  Serious: Yes (Hospitalization, Disabling, Other)
  Sender: FDA-Public Use
  Company Number: B0515801A

PATIENT
  Age: 19 Year
  Sex: Male
  Weight: 50 kg

DRUGS (31)
  1. ARRANON [Suspect]
     Dosage: 1500MG PER DAY
     Route: 042
     Dates: start: 20080401, end: 20080401
  2. ARRANON [Suspect]
     Dosage: 1500MGM2 PER DAY
     Route: 042
     Dates: start: 20080403, end: 20080403
  3. MITOXANTRONE HYDROCHLORIDE [Suspect]
     Indication: NEOPLASM MALIGNANT
     Dosage: 807MG PER DAY
     Route: 042
     Dates: start: 20080411, end: 20080417
  4. ETOPOSIDE [Suspect]
     Indication: NEOPLASM MALIGNANT
     Dosage: 110MG PER DAY
     Route: 065
     Dates: start: 20080411, end: 20080417
  5. CYTARABINE [Suspect]
     Indication: NEOPLASM MALIGNANT
     Dosage: 110MG PER DAY
     Route: 065
     Dates: start: 20080411, end: 20080417
  6. CYTARABINE [Concomitant]
     Dates: start: 20070314, end: 20070318
  7. METHOTREXATE [Concomitant]
     Indication: NEOPLASM MALIGNANT
     Dates: start: 20070613, end: 20071102
  8. CYLOCIDE [Concomitant]
     Indication: NEOPLASM MALIGNANT
     Dates: start: 20070613, end: 20071102
  9. ONCOVIN [Concomitant]
     Indication: NEOPLASM MALIGNANT
     Route: 042
     Dates: start: 20070725, end: 20070808
  10. ADRIACIN [Concomitant]
     Indication: NEOPLASM MALIGNANT
     Route: 042
     Dates: start: 20070725, end: 20070808
  11. KYTRIL [Concomitant]
     Indication: DRUG USE FOR UNKNOWN INDICATION
     Route: 042
     Dates: start: 20080401, end: 20080403
  12. FRAGMIN [Concomitant]
     Indication: DRUG USE FOR UNKNOWN INDICATION
     Route: 042
     Dates: start: 20080401, end: 20080406
  13. ATARAX [Concomitant]
     Indication: DRUG USE FOR UNKNOWN INDICATION
     Dates: start: 20080404, end: 20080421
  14. PREDNISOLONE [Concomitant]
     Indication: DRUG USE FOR UNKNOWN INDICATION
     Dates: start: 20080401, end: 20080527
  15. ITRACONAZOLE [Concomitant]
     Indication: DRUG USE FOR UNKNOWN INDICATION
     Route: 048
     Dates: start: 20080401, end: 20080421
  16. FUNGUARD [Concomitant]
     Indication: DRUG USE FOR UNKNOWN INDICATION
     Route: 042
     Dates: start: 20080422, end: 20080428
  17. ITRIZOLE [Concomitant]
     Indication: DRUG USE FOR UNKNOWN INDICATION
     Route: 042
     Dates: start: 20080429, end: 20080504
  18. BAKTAR [Concomitant]
     Indication: DRUG USE FOR UNKNOWN INDICATION
     Route: 048
     Dates: start: 20080401, end: 20080527
  19. IMMUNE GLOBULIN INTRAVENOUS (HUMAN) [Concomitant]
     Indication: DRUG USE FOR UNKNOWN INDICATION
     Route: 042
     Dates: start: 20080421, end: 20080516
  20. MUCOSTA [Concomitant]
     Indication: DRUG USE FOR UNKNOWN INDICATION
     Route: 048
     Dates: start: 20080401, end: 20080421
  21. URSO 250 [Concomitant]
     Indication: DRUG USE FOR UNKNOWN INDICATION
     Route: 048
     Dates: start: 20080401, end: 20080421
  22. TAKEPRON [Concomitant]
     Indication: DRUG USE FOR UNKNOWN INDICATION
     Route: 048
     Dates: start: 20080401, end: 20080421
  23. PANVITAN [Concomitant]
     Indication: DRUG USE FOR UNKNOWN INDICATION
     Route: 048
     Dates: start: 20080401, end: 20080421
  24. ALOSITOL [Concomitant]
     Indication: DRUG USE FOR UNKNOWN INDICATION
     Route: 048
     Dates: start: 20080410, end: 20080416
  25. ALLEGRA [Concomitant]
     Indication: DRUG USE FOR UNKNOWN INDICATION
     Route: 048
     Dates: start: 20080411, end: 20080421
  26. BIOFERMIN R [Concomitant]
     Indication: DRUG USE FOR UNKNOWN INDICATION
     Route: 048
     Dates: start: 20080421, end: 20080421
  27. ZANTAC [Concomitant]
     Indication: DRUG USE FOR UNKNOWN INDICATION
     Dates: start: 20080422, end: 20080429
  28. DEXAMETHASONE SODIUM PHOSPHATE [Concomitant]
     Indication: NEOPLASM MALIGNANT
     Dates: start: 20070613, end: 20070801
  29. GANCICLOVIR [Concomitant]
     Indication: DRUG USE FOR UNKNOWN INDICATION
     Dates: start: 20080401, end: 20080415
  30. FLUCONAZOLE [Concomitant]
     Indication: DRUG USE FOR UNKNOWN INDICATION
     Route: 042
     Dates: start: 20080506, end: 20080513
  31. FLUCONAZOLE [Concomitant]
     Route: 048
     Dates: start: 20080514, end: 20080527

REACTIONS (10)
  - ALANINE AMINOTRANSFERASE INCREASED [None]
  - ANAEMIA [None]
  - FEBRILE NEUTROPENIA [None]
  - HYPERBILIRUBINAEMIA [None]
  - HYPOAESTHESIA [None]
  - MUSCULAR WEAKNESS [None]
  - NEUTROPENIA [None]
  - PLATELET COUNT DECREASED [None]
  - STOMATITIS [None]
  - WHITE BLOOD CELL COUNT DECREASED [None]
